FAERS Safety Report 7789116-X (Version None)
Quarter: 2011Q3

REPORT INFORMATION
  Report Type: 
  Country: None (occurrence: None)
  Receive Date: 20110930
  Receipt Date: 20110921
  Transmission Date: 20111222
  Serious: Yes (Hospitalization)
  Sender: FDA-Public Use
  Company Number: US-JNJFOC-20110909249

PATIENT
  Sex: Female
  Weight: 72.58 kg

DRUGS (1)
  1. SIMPONI [Suspect]
     Indication: RHEUMATOID ARTHRITIS
     Route: 058
     Dates: start: 20110401

REACTIONS (3)
  - HYSTERECTOMY [None]
  - DRUG DOSE OMISSION [None]
  - DEVICE MALFUNCTION [None]
